FAERS Safety Report 18011117 (Version 1)
Quarter: 2020Q3

REPORT INFORMATION
  Report Type: Spontaneous
  Country: FR (occurrence: FR)
  Receive Date: 20200711
  Receipt Date: 20200711
  Transmission Date: 20201103
  Serious: Yes (Hospitalization)
  Sender: FDA-Public Use
  Company Number: NVSC2020FR191488

PATIENT
  Age: 68 Year
  Sex: Female
  Weight: 53 kg

DRUGS (2)
  1. DOXORUBICINE [Suspect]
     Active Substance: DOXORUBICIN
     Indication: MALIGNANT HISTIOCYTOSIS
     Dosage: 92 MG, CYCLIC
     Route: 041
     Dates: start: 20190208, end: 20190415
  2. MEKINIST [Suspect]
     Active Substance: TRAMETINIB DIMETHYL SULFOXIDE
     Indication: MALIGNANT HISTIOCYTOSIS
     Dosage: 15 MG, QD
     Route: 048
     Dates: start: 20200212, end: 20200410

REACTIONS (1)
  - Cardiac failure [Recovered/Resolved]

NARRATIVE: CASE EVENT DATE: 20200226
